FAERS Safety Report 5404304-5 (Version None)
Quarter: 2007Q3

REPORT INFORMATION
  Report Type: 
  Country: None (occurrence: None)
  Receive Date: 20070730
  Receipt Date: 20070724
  Transmission Date: 20080115
  Serious: Yes (Other)
  Sender: FDA-Public Use
  Company Number: 6035796

PATIENT

DRUGS (2)
  1. WARFARIN SODIUM [Suspect]
     Indication: DRUG USE FOR UNKNOWN INDICATION
  2. TRIAMCINOLONE [Suspect]
     Indication: MACULAR OEDEMA

REACTIONS (3)
  - CATARACT [None]
  - CONJUNCTIVAL HAEMORRHAGE [None]
  - INTRAOCULAR PRESSURE INCREASED [None]
